FAERS Safety Report 10383964 (Version 1)
Quarter: 2014Q3

REPORT INFORMATION
  Report Type: Spontaneous
  Country: US (occurrence: US)
  Receive Date: 20140814
  Receipt Date: 20140814
  Transmission Date: 20150326
  Serious: No
  Sender: FDA-Public Use
  Company Number: US-MYLAN-2014S1015820

PATIENT
  Age: 38 Year
  Sex: Female
  Weight: 72.12 kg

DRUGS (5)
  1. HYDROCORTISONE. [Concomitant]
     Active Substance: HYDROCORTISONE
     Dosage: UNK
     Route: 048
  2. XULANE [Suspect]
     Active Substance: ETHINYL ESTRADIOL\NORELGESTROMIN
     Indication: HORMONE THERAPY
     Dosage: 150 ?G,QD
     Route: 062
     Dates: start: 20140605
  3. TROKENDI [Concomitant]
     Indication: EPILEPSY
     Dosage: 100 MG,UNK
     Route: 048
  4. VOLTAREN [Concomitant]
     Active Substance: DICLOFENAC SODIUM
     Dosage: UNK UNK,BID
     Route: 048
  5. LIDODERM [Concomitant]
     Active Substance: LIDOCAINE
     Dosage: UNK
     Route: 062

REACTIONS (5)
  - Metrorrhagia [Not Recovered/Not Resolved]
  - Reaction to drug excipients [Not Recovered/Not Resolved]
  - Vaginal discharge [Not Recovered/Not Resolved]
  - Fatigue [Not Recovered/Not Resolved]
  - Abdominal pain [Not Recovered/Not Resolved]

NARRATIVE: CASE EVENT DATE: 201406
